FAERS Safety Report 15261308 (Version 1)
Quarter: 2018Q3

REPORT INFORMATION
  Report Type: Spontaneous
  Country: US (occurrence: US)
  Receive Date: 20180719
  Receipt Date: 20180719
  Transmission Date: 20181010
  Serious: No
  Sender: FDA-Public Use
  Company Number: None

PATIENT
  Age: 76 Year
  Sex: Female

DRUGS (1)
  1. IMATINIB TAB 400MG [Suspect]
     Active Substance: IMATINIB
     Dates: start: 20180130, end: 20180719

REACTIONS (4)
  - Peripheral swelling [None]
  - Fluid retention [None]
  - Stomatitis [None]
  - Feeling abnormal [None]

NARRATIVE: CASE EVENT DATE: 20180719
